FAERS Safety Report 10912483 (Version 1)
Quarter: 2015Q1

REPORT INFORMATION
  Report Type: Spontaneous
  Country: RU (occurrence: RU)
  Receive Date: 20150313
  Receipt Date: 20150313
  Transmission Date: 20150721
  Serious: Yes (Death, Life-Threatening, Hospitalization)
  Sender: FDA-Public Use
  Company Number: RU-ASTRAZENECA-2015SE21635

PATIENT
  Age: 64 Year
  Sex: Female
  Weight: 75 kg

DRUGS (7)
  1. BRILINTA [Suspect]
     Active Substance: TICAGRELOR
     Indication: ACUTE CORONARY SYNDROME
     Route: 048
     Dates: start: 201405, end: 20150302
  2. FUROSEMIDE. [Concomitant]
     Active Substance: FUROSEMIDE
  3. ANTIBIOTIC [Concomitant]
     Active Substance: UNSPECIFIED INGREDIENT
  4. OMEPRAZOLE. [Concomitant]
     Active Substance: OMEPRAZOLE
     Route: 048
  5. ADRENALINE [Concomitant]
     Active Substance: EPINEPHRINE
     Route: 051
  6. HEPARIN [Concomitant]
     Active Substance: HEPARIN SODIUM
     Route: 051
  7. DOPAMINE [Concomitant]
     Active Substance: DOPAMINE\DOPAMINE HYDROCHLORIDE
     Route: 051

REACTIONS (5)
  - Cardiogenic shock [Fatal]
  - Aortic thrombosis [Fatal]
  - Thrombosis in device [Fatal]
  - Myocardial infarction [Fatal]
  - Pulmonary embolism [Fatal]

NARRATIVE: CASE EVENT DATE: 20150302
